FAERS Safety Report 19201955 (Version 5)
Quarter: 2025Q2

REPORT INFORMATION
  Report Type: Report from Study
  Country: US (occurrence: US)
  Receive Date: 20210430
  Receipt Date: 20250618
  Transmission Date: 20250717
  Serious: Yes (Hospitalization, Other)
  Sender: TAKEDA
  Company Number: US-TAKEDA-US201912294

PATIENT
  Age: 74 Year
  Sex: Female

DRUGS (2)
  1. HUMAN IMMUNOGLOBULIN G [Suspect]
     Active Substance: HUMAN IMMUNOGLOBULIN G
     Indication: Primary immunodeficiency syndrome
  2. HUMAN IMMUNOGLOBULIN G [Suspect]
     Active Substance: HUMAN IMMUNOGLOBULIN G
     Indication: Immunodeficiency common variable

REACTIONS (6)
  - Localised infection [Unknown]
  - COVID-19 [Unknown]
  - Gallbladder rupture [Unknown]
  - Anxiety [Unknown]
  - Peripheral venous disease [Unknown]
  - Hernia [Unknown]

NARRATIVE: CASE EVENT DATE: 20250616
